FAERS Safety Report 16151676 (Version 1)
Quarter: 2019Q2

REPORT INFORMATION
  Report Type: Spontaneous
  Country: US (occurrence: US)
  Receive Date: 20190403
  Receipt Date: 20190403
  Transmission Date: 20190711
  Serious: Yes (Other)
  Sender: FDA-Public Use
  Company Number: US-PERRIGO-19US003896

PATIENT
  Age: 30 Year
  Sex: Female
  Weight: 99.77 kg

DRUGS (1)
  1. SALINE NASAL [Suspect]
     Active Substance: SODIUM CHLORIDE
     Indication: ACCIDENTAL EXPOSURE TO PRODUCT
     Dosage: UNKNOWN AMOUNT, SINGLE
     Route: 047
     Dates: start: 20190321, end: 20190321

REACTIONS (3)
  - Visual impairment [Recovering/Resolving]
  - Corneal abrasion [Not Recovered/Not Resolved]
  - Accidental exposure to product [Recovered/Resolved]

NARRATIVE: CASE EVENT DATE: 20190321
